FAERS Safety Report 4407402-8 (Version None)
Quarter: 2004Q3

REPORT INFORMATION
  Report Type: 
  Country: None (occurrence: None)
  Receive Date: 20040721
  Receipt Date: 20040706
  Transmission Date: 20050211
  Serious: Yes (Hospitalization)
  Sender: FDA-Public Use
  Company Number: 200990

PATIENT
  Age: 46 Year
  Sex: Female

DRUGS (1)
  1. AVONEX [Suspect]
     Indication: MULTIPLE SCLEROSIS
     Dosage: 30 MCG QW IM
     Route: 030
     Dates: start: 19980303, end: 20040101

REACTIONS (4)
  - DIFFICULTY IN WALKING [None]
  - DYSARTHRIA [None]
  - OESTROGEN DEFICIENCY [None]
  - VISUAL DISTURBANCE [None]
